FAERS Safety Report 13527743 (Version 2)
Quarter: 2017Q2

REPORT INFORMATION
  Report Type: Spontaneous
  Country: US (occurrence: US)
  Receive Date: 20170509
  Receipt Date: 20170530
  Transmission Date: 20170830
  Serious: Yes (Other)
  Sender: FDA-Public Use
  Company Number: US-SMITH AND NEPHEW, INC-2017SMT00277

PATIENT
  Age: 76 Year
  Sex: Male
  Weight: 79.37 kg

DRUGS (4)
  1. REGRANEX [Suspect]
     Active Substance: BECAPLERMIN
     Indication: DIABETIC ULCER
     Dosage: UNK, 1X/DAY FOR 12 HOURS ON AND 12 HOURS OFF
     Route: 061
     Dates: start: 201704
  2. UNSPECIFIED DIABETES MEDICATIONS [Concomitant]
  3. REGRANEX [Suspect]
     Active Substance: BECAPLERMIN
     Dosage: UNK
     Route: 061
  4. UNSPECIFIED HEART MEDICATIONS [Concomitant]
     Active Substance: UNSPECIFIED INGREDIENT

REACTIONS (5)
  - Toe amputation [Recovered/Resolved with Sequelae]
  - Application site haemorrhage [Not Recovered/Not Resolved]
  - Wound complication [Not Recovered/Not Resolved]
  - Tendon disorder [Unknown]
  - Diabetic ulcer [Not Recovered/Not Resolved]

NARRATIVE: CASE EVENT DATE: 2015
